FAERS Safety Report 9491369 (Version 2)
Quarter: 2013Q3

REPORT INFORMATION
  Report Type: Report from Study
  Country: JP (occurrence: JP)
  Receive Date: 20130830
  Receipt Date: 20130830
  Transmission Date: 20140515
  Serious: Yes (Hospitalization)
  Sender: FDA-Public Use
  Company Number: PHHO2010JP11835

PATIENT
  Age: 63 Year
  Sex: Male

DRUGS (12)
  1. ALISKIREN [Suspect]
     Indication: CARDIOVASCULAR DISORDER
     Route: 048
     Dates: start: 20090109
  2. ACTOS [Concomitant]
     Indication: DIABETES MELLITUS
  3. DAONIL [Concomitant]
     Indication: DIABETES MELLITUS
  4. DIOVAN [Concomitant]
     Indication: HYPERTENSION
  5. CARDENALIN [Concomitant]
     Indication: HYPERTENSION
  6. ADALAT CR [Concomitant]
     Indication: HYPERTENSION
  7. LUPRAC [Concomitant]
     Indication: HYPERTENSION
  8. SELBEX [Concomitant]
     Indication: GASTRITIS
  9. MEVALOTIN [Concomitant]
     Indication: HYPERLIPIDAEMIA
  10. COUGH AND COLD PREPARATIONS [Concomitant]
     Indication: PROPHYLAXIS
  11. KARY UNI [Concomitant]
     Indication: CATARACT
  12. TARIVID [Concomitant]
     Indication: OTITIS EXTERNA

REACTIONS (3)
  - Prostate cancer [Recovering/Resolving]
  - Lymphadenopathy [Recovering/Resolving]
  - Prostatomegaly [Recovering/Resolving]
